FAERS Safety Report 6544516-0 (Version None)
Quarter: 2010Q1

REPORT INFORMATION
  Report Type: 
  Country: None (occurrence: None)
  Receive Date: 20100120
  Receipt Date: 20100120
  Transmission Date: 20100710
  Serious: Yes (Life-Threatening)
  Sender: FDA-Public Use
  Company Number: None

PATIENT
  Age: 33 Year
  Sex: Male
  Weight: 90.7194 kg

DRUGS (1)
  1. NUCYNTA [Suspect]
     Indication: FIBROMYALGIA
     Dosage: 50 MG ONCE PO
     Route: 048
     Dates: start: 20090722, end: 20090722

REACTIONS (5)
  - BLOOD PRESSURE INCREASED [None]
  - CHEST DISCOMFORT [None]
  - HEART RATE INCREASED [None]
  - HYPERHIDROSIS [None]
  - PYREXIA [None]
